FAERS Safety Report 6329826-4 (Version None)
Quarter: 2009Q3

REPORT INFORMATION
  Report Type: 
  Country: None (occurrence: None)
  Receive Date: 20090826
  Receipt Date: 20090803
  Transmission Date: 20100115
  Serious: No
  Sender: FDA-Public Use
  Company Number: US-ALLERGAN-0910741US

PATIENT
  Age: 42 Year
  Sex: Female

DRUGS (1)
  1. ACZONE GEL 5% [Suspect]
     Indication: ACNE
     Dosage: UNK, UNK
     Route: 061

REACTIONS (1)
  - OROPHARYNGEAL PAIN [None]
